FAERS Safety Report 6527345-3 (Version None)
Quarter: 2009Q4

REPORT INFORMATION
  Report Type: 
  Country: None (occurrence: None)
  Receive Date: 20091223
  Receipt Date: 20091007
  Transmission Date: 20100525
  Serious: No
  Sender: FDA-Public Use
  Company Number: ALL1-2009-03112

PATIENT
  Age: 53 Year
  Sex: Female
  Weight: 59 kg

DRUGS (5)
  1. VYVANSE [Suspect]
     Indication: ATTENTION DEFICIT/HYPERACTIVITY DISORDER
     Dosage: 30; 40 MG, 1X/DAY:QD, ORAL
     Route: 048
     Dates: start: 20090701, end: 20090101
  2. VYVANSE [Suspect]
     Indication: ATTENTION DEFICIT/HYPERACTIVITY DISORDER
     Dosage: 30; 40 MG, 1X/DAY:QD, ORAL
     Route: 048
     Dates: start: 20090101
  3. ELAVIL /00002202/ (AMITRIPTYLINE HYDROCHLORIDE) [Concomitant]
  4. TRAZODONE [Concomitant]
  5. EFFEXOR /01233801/ (VENLAFAXINE) [Concomitant]

REACTIONS (2)
  - INSOMNIA [None]
  - MUSCLE TIGHTNESS [None]
